FAERS Safety Report 18374319 (Version 2)
Quarter: 2020Q4

REPORT INFORMATION
  Report Type: Spontaneous
  Country: DE (occurrence: DE)
  Receive Date: 20201012
  Receipt Date: 20201016
  Transmission Date: 20210114
  Serious: Yes (Other)
  Sender: FDA-Public Use
  Company Number: DE-ANIPHARMA-2020-DE-000230

PATIENT
  Age: 77 Year
  Sex: Male
  Weight: 87 kg

DRUGS (5)
  1. ACETYLSALICYLIC ACID [Concomitant]
     Active Substance: ASPIRIN
     Dosage: 100 DAILY
     Route: 065
  2. NOVORAPID [Suspect]
     Active Substance: INSULIN ASPART
     Dosage: 22-14-18 IU / DOSE TEXT: REDUCED BY 14 IU (APPROXIMATELY 25 PERCENT) / REDUCED AGAIN / REDUCED AGAIN
     Route: 065
     Dates: start: 201808
  3. PROTAPHANE [Suspect]
     Active Substance: INSULIN HUMAN
     Dosage: PROTAPHANE 48 IU 11:00 P.M/ DOSE TEXT: REDUCED BY 8 IU (APPROXIMATELY 20 PERCENT) / IF PROTAPHANE WA
     Route: 065
     Dates: start: 201804
  4. CANDESARTAN CILEXETIL. [Suspect]
     Active Substance: CANDESARTAN CILEXETIL
     Indication: PRODUCT USED FOR UNKNOWN INDICATION
     Dosage: 8 MG BID
     Route: 048
  5. ALLOPURINOL. [Concomitant]
     Active Substance: ALLOPURINOL
     Dosage: 300 TWO TIMES A WEEK
     Route: 065

REACTIONS (5)
  - Hypoglycaemia [Unknown]
  - Blood glucose fluctuation [Unknown]
  - Weight decreased [Unknown]
  - Loss of consciousness [Unknown]
  - Anxiety disorder due to a general medical condition [Unknown]
